FAERS Safety Report 9291181 (Version 1)
Quarter: 2012Q4

REPORT INFORMATION
  Report Type: Spontaneous
  Country: GB (occurrence: None)
  Receive Date: 20121127
  Receipt Date: 20121127
  Transmission Date: 20130627
  Serious: Yes (Death, Hospitalization, Other)
  Sender: FDA-Public Use
  Company Number: GER/UKI/12/0025279

PATIENT
  Age: 47 Year
  Sex: Male
  Weight: 101 kg

DRUGS (4)
  1. OLANZAPINE (OLANZAPINE) [Suspect]
     Indication: SCHIZOPHRENIA
     Route: 048
     Dates: end: 20111128
  2. OLANZAPINE (OLANZAPINE) [Suspect]
     Indication: SCHIZOPHRENIA
     Route: 048
     Dates: start: 20111130
  3. ZYPREXA (OLANZAPINE) [Suspect]
     Indication: SCHIZOPHRENIA
     Dosage: 10 mg as needed; a max of 20 mg 2 -3 day, Intramuscular
     Route: 030
  4. MORPHINE (MORPHINE) (UNKNOWN) (MORPHINE) [Concomitant]

REACTIONS (6)
  - Confusional state [None]
  - Megacolon [None]
  - Systemic candida [None]
  - Multi-organ failure [None]
  - Off label use [None]
  - Shock [None]
